FAERS Safety Report 8185973-6 (Version None)
Quarter: 2012Q1

REPORT INFORMATION
  Report Type: 
  Country: None (occurrence: None)
  Receive Date: 20120305
  Receipt Date: 20120228
  Transmission Date: 20120608
  Serious: Yes (Hospitalization, Other)
  Sender: FDA-Public Use
  Company Number: FR-ABBOTT-11P-056-0856164-00

PATIENT
  Age: 52 Year
  Sex: Female

DRUGS (2)
  1. DEPAKENE [Suspect]
     Indication: EPILEPSY
     Dosage: 750 MG DAILY
     Route: 048
     Dates: start: 20110209
  2. DEPAKENE [Suspect]
     Dosage: 1500 MG DAILY
     Route: 048

REACTIONS (4)
  - DRUG DISPENSING ERROR [None]
  - PETIT MAL EPILEPSY [None]
  - URINARY TRACT DISORDER [None]
  - CONVULSION [None]
